FAERS Safety Report 9373549 (Version 1)
Quarter: 2013Q2

REPORT INFORMATION
  Report Type: Other
  Country: GB (occurrence: GB)
  Receive Date: 20130627
  Receipt Date: 20130627
  Transmission Date: 20140414
  Serious: Yes (Hospitalization, Other)
  Sender: FDA-Public Use
  Company Number: GB-ACTAVIS-2013-11677

PATIENT
  Sex: Female

DRUGS (7)
  1. TEMAZEPAM (UNKNOWN) [Suspect]
     Indication: PRODUCT USED FOR UNKNOWN INDICATION
     Dosage: 10 MG, PRN
     Route: 065
     Dates: end: 201207
  2. PROMAZINE [Suspect]
     Indication: SLEEP DISORDER
     Dosage: 75 MG, DAILY
     Route: 065
     Dates: start: 1991, end: 201207
  3. LEVOTHYROXINE SODIUM [Suspect]
     Indication: HYPOTHYROIDISM
     Dosage: 50 MCG, UNK
     Route: 065
     Dates: start: 2002
  4. NARDIL [Suspect]
     Indication: DEPRESSION
     Dosage: 15 MG, UNK
     Route: 065
     Dates: start: 1988
  5. UNSPECIFIED INGREDIENTS [Suspect]
     Indication: LOWER RESPIRATORY TRACT INFECTION
     Dosage: UNK
     Route: 065
     Dates: start: 2010
  6. NUROFEN [Suspect]
     Indication: BURSITIS
     Route: 065
  7. CETIRIZINE [Suspect]
     Indication: PRURITUS GENERALISED
     Dosage: UNK
     Route: 065
     Dates: start: 2010, end: 2012

REACTIONS (15)
  - Urinary tract infection [Unknown]
  - C-reactive protein increased [Unknown]
  - Sepsis [Unknown]
  - Lower respiratory tract infection [Unknown]
  - Hypertension [Unknown]
  - Jessner^s lymphocytic infiltration [Unknown]
  - Pruritus generalised [Recovered/Resolved]
  - Hyperhidrosis [Recovered/Resolved]
  - Antiphospholipid antibodies positive [Unknown]
  - Bursitis [Unknown]
  - Pruritus [Recovered/Resolved]
  - Blood urea increased [Not Recovered/Not Resolved]
  - Glomerular filtration rate decreased [Not Recovered/Not Resolved]
  - Insomnia [Unknown]
  - Nodule [Unknown]
